FAERS Safety Report 7943944-6 (Version None)
Quarter: 2011Q4

REPORT INFORMATION
  Report Type: 
  Country: None (occurrence: None)
  Receive Date: 20111128
  Receipt Date: 20111121
  Transmission Date: 20120403
  Serious: Yes (Hospitalization)
  Sender: FDA-Public Use
  Company Number: FR-ROCHE-1007488

PATIENT
  Sex: Male
  Weight: 68 kg

DRUGS (6)
  1. XANAX [Concomitant]
     Dosage: 0.5 MG/D
     Route: 048
     Dates: start: 20110101
  2. EFFEXOR [Concomitant]
     Dosage: 75 MG/D
     Route: 048
     Dates: start: 20050101
  3. CISPLATIN [Suspect]
     Indication: MANTLE CELL LYMPHOMA
     Route: 065
     Dates: start: 20110927, end: 20110930
  4. MABTHERA [Suspect]
     Indication: MANTLE CELL LYMPHOMA
     Route: 041
     Dates: start: 20110930
  5. DEXAMETHASONE [Suspect]
     Indication: MANTLE CELL LYMPHOMA
     Dosage: 40 MG/D
     Route: 065
     Dates: start: 20110927, end: 20110930
  6. CYTARABINE [Suspect]
     Indication: MANTLE CELL LYMPHOMA
     Dosage: 3.6 G/D
     Route: 065
     Dates: start: 20110928

REACTIONS (1)
  - FEBRILE BONE MARROW APLASIA [None]
